APPROVED DRUG PRODUCT: GLUCAGON
Active Ingredient: GLUCAGON HYDROCHLORIDE
Strength: EQ 10MG BASE/VIAL **Federal Register determination that product was not discontinued or withdrawn for safety or effectiveness reasons**
Dosage Form/Route: INJECTABLE;INJECTION
Application: N012122 | Product #002
Applicant: ELI LILLY AND CO
Approved: Approved Prior to Jan 1, 1982 | RLD: Yes | RS: No | Type: DISCN